FAERS Safety Report 9470685 (Version 1)
Quarter: 2013Q3

REPORT INFORMATION
  Report Type: Spontaneous
  Country: DE (occurrence: None)
  Receive Date: 20130815
  Receipt Date: 20130815
  Transmission Date: 20140515
  Serious: Yes (Other)
  Sender: FDA-Public Use
  Company Number: AUR-APL-2013-06551

PATIENT
  Age: 46 Year
  Sex: Male
  Weight: 102 kg

DRUGS (1)
  1. SIMVASTATIN (SIMVASTATIN) [Suspect]
     Indication: HYPERLIPIDAEMIA
     Route: 048

REACTIONS (1)
  - Respiratory distress [None]
